FAERS Safety Report 15170539 (Version 1)
Quarter: 2018Q3

REPORT INFORMATION
  Report Type: Spontaneous
  Country: US (occurrence: US)
  Receive Date: 20180720
  Receipt Date: 20180720
  Transmission Date: 20181010
  Serious: No
  Sender: FDA-Public Use
  Company Number: US-INSYS THERAPEUTICS, INC-INS201805-000199

PATIENT
  Sex: Male

DRUGS (1)
  1. SYNDROS [Suspect]
     Active Substance: DRONABINOL
     Indication: PRODUCT USED FOR UNKNOWN INDICATION

REACTIONS (3)
  - Underdose [Unknown]
  - Drug administration error [Unknown]
  - Drug ineffective [Unknown]
